FAERS Safety Report 8051441-5 (Version None)
Quarter: 2012Q1

REPORT INFORMATION
  Report Type: 
  Country: None (occurrence: None)
  Receive Date: 20120117
  Receipt Date: 20120109
  Transmission Date: 20120608
  Serious: Yes (Hospitalization)
  Sender: FDA-Public Use
  Company Number: DE-ROCHE-1026801

PATIENT
  Sex: Male

DRUGS (9)
  1. LYRICA [Suspect]
     Indication: SUICIDE ATTEMPT
     Route: 048
  2. MARCUMAR [Suspect]
     Indication: SUICIDE ATTEMPT
     Route: 048
  3. DIPYRONE TAB [Suspect]
     Indication: SUICIDE ATTEMPT
     Route: 048
  4. BISOPROLOL FUMARATE [Suspect]
     Indication: SUICIDE ATTEMPT
     Route: 048
  5. ASPIRIN [Suspect]
     Indication: SUICIDE ATTEMPT
     Route: 048
  6. TORSEMIDE [Suspect]
     Indication: SUICIDE ATTEMPT
     Route: 048
  7. SIMVASTATIN [Suspect]
     Indication: SUICIDE ATTEMPT
     Route: 048
  8. RAMIPRIL [Suspect]
     Indication: SUICIDE ATTEMPT
     Route: 048
  9. SPIRONOLACTONE [Suspect]
     Indication: SUICIDE ATTEMPT
     Route: 048

REACTIONS (5)
  - LACRIMATION INCREASED [None]
  - HAEMATEMESIS [None]
  - SUICIDE ATTEMPT [None]
  - AGITATION [None]
  - MULTIPLE DRUG OVERDOSE INTENTIONAL [None]
